FAERS Safety Report 8540752-2 (Version None)
Quarter: 2012Q3

REPORT INFORMATION
  Report Type: 
  Country: None (occurrence: None)
  Receive Date: 20120726
  Receipt Date: 20120615
  Transmission Date: 20120928
  Serious: No
  Sender: FDA-Public Use
  Company Number: US-MYLANLABS-2012S1010141

PATIENT
  Age: 48 Year
  Sex: Female

DRUGS (7)
  1. THYROID TAB [Concomitant]
  2. PROGESTERONE [Concomitant]
     Indication: HYSTERECTOMY
  3. MULTI-VITAMIN [Concomitant]
  4. B COMPLEX /00212701/ [Concomitant]
  5. ESTRIOL [Concomitant]
     Indication: OVARIAN CYST
  6. ATIVAN [Concomitant]
     Indication: ANXIETY
  7. CLONIDINE [Suspect]
     Indication: BLOOD PRESSURE INCREASED
     Dosage: CHANGED TWICE WEEKLY
     Route: 062
     Dates: start: 20100101

REACTIONS (2)
  - BLOOD PRESSURE INCREASED [None]
  - DRUG EFFECT DECREASED [None]
